FAERS Safety Report 8207399-9 (Version None)
Quarter: 2012Q1

REPORT INFORMATION
  Report Type: 
  Country: None (occurrence: None)
  Receive Date: 20120312
  Receipt Date: 20120301
  Transmission Date: 20120608
  Serious: Yes (Life-Threatening, Other)
  Sender: FDA-Public Use
  Company Number: AUR-APL-2012-01005

PATIENT
  Age: 55 Year
  Sex: Female

DRUGS (4)
  1. SIMVASTATIN [Concomitant]
  2. ATENOLOL [Concomitant]
  3. RAMIPRIL [Suspect]
     Indication: PRODUCT USED FOR UNKNOWN INDICATION
     Dosage: 10 MG (10 MG, 1 IN 1 D), UNKOWN
  4. METFORMIN HCL [Suspect]
     Indication: PRODUCT USED FOR UNKNOWN INDICATION
     Dosage: 3000 MG (1000 MG, 3 IN 1 D), UNKNOWN

REACTIONS (18)
  - PO2 INCREASED [None]
  - PCO2 DECREASED [None]
  - BLOOD LACTIC ACID INCREASED [None]
  - BLOOD POTASSIUM INCREASED [None]
  - ANION GAP INCREASED [None]
  - CONTINUOUS HAEMODIAFILTRATION [None]
  - DRUG LEVEL INCREASED [None]
  - BODY TEMPERATURE DECREASED [None]
  - VOMITING [None]
  - RESPIRATORY RATE INCREASED [None]
  - FATIGUE [None]
  - DEPRESSED LEVEL OF CONSCIOUSNESS [None]
  - ELECTROCARDIOGRAM T WAVE PEAKED [None]
  - LACTIC ACIDOSIS [None]
  - RENAL FAILURE ACUTE [None]
  - DEHYDRATION [None]
  - SOMNOLENCE [None]
  - BLOOD PRESSURE IMMEASURABLE [None]
